FAERS Safety Report 17910994 (Version 2)
Quarter: 2021Q2

REPORT INFORMATION
  Report Type: Spontaneous
  Country: FR (occurrence: FR)
  Receive Date: 20200618
  Receipt Date: 20210402
  Transmission Date: 20210717
  Serious: Yes (Other)
  Sender: FDA-Public Use
  Company Number: FR-SUN PHARMACEUTICAL INDUSTRIES LTD-2020RR-250641

PATIENT
  Age: 65 Year
  Sex: Male
  Weight: 85 kg

DRUGS (3)
  1. DUTASTERIDE BIOGARAN 0.5 MG, CAPSULE MOLLE [Suspect]
     Active Substance: DUTASTERIDE
     Indication: PROSTATIC ADENOMA
     Dosage: 1 DOSAGE FORM, DAILY
     Route: 048
     Dates: start: 20200304, end: 20200424
  2. TAMSULOSIN [Suspect]
     Active Substance: TAMSULOSIN
     Indication: PROSTATIC ADENOMA
     Dosage: UNK
     Route: 048
     Dates: end: 20200620
  3. ZOLOFT [Concomitant]
     Active Substance: SERTRALINE HYDROCHLORIDE
     Indication: PRODUCT USED FOR UNKNOWN INDICATION
     Dosage: UNK
     Route: 048

REACTIONS (4)
  - Depressed mood [Not Recovered/Not Resolved]
  - Retrograde ejaculation [Not Recovered/Not Resolved]
  - Ejaculation disorder [Not Recovered/Not Resolved]
  - Fatigue [Not Recovered/Not Resolved]

NARRATIVE: CASE EVENT DATE: 202003
